FAERS Safety Report 7131131-3 (Version None)
Quarter: 2010Q4

REPORT INFORMATION
  Report Type: 
  Country: None (occurrence: None)
  Receive Date: 20101124
  Receipt Date: 20101124
  Transmission Date: 20110411
  Serious: Yes (Disabling, Other)
  Sender: FDA-Public Use
  Company Number: None

PATIENT
  Sex: Female
  Weight: 70.7611 kg

DRUGS (12)
  1. SEROQUEL XR [Suspect]
     Indication: DEPRESSION
     Dosage: 400MG 1XDAY ORAL; 300 MG 1XDAY ORAL
     Route: 048
     Dates: start: 20071224, end: 20081201
  2. SEROQUEL XR [Suspect]
     Indication: DEPRESSION
     Dosage: 400MG 1XDAY ORAL; 300 MG 1XDAY ORAL
     Route: 048
     Dates: start: 20081201, end: 20101020
  3. PROGRAF [Concomitant]
  4. LEVOTHYROXINE [Concomitant]
  5. CREON [Concomitant]
  6. RANITIDE [Concomitant]
  7. POTASSIUM CHLORIDE [Concomitant]
  8. TRIMETH/SULFATE (S/S) SMZ-TMP [Concomitant]
  9. ALDRONATE [Concomitant]
  10. VIT D [Concomitant]
  11. SYNTHROID [Concomitant]
  12. POTTASIUM CHLORIDE [Concomitant]

REACTIONS (2)
  - CATARACT [None]
  - CONDITION AGGRAVATED [None]
